FAERS Safety Report 21396902 (Version 5)
Quarter: 2022Q4

REPORT INFORMATION
  Report Type: Spontaneous
  Country: JP (occurrence: JP)
  Receive Date: 20220930
  Receipt Date: 20221223
  Transmission Date: 20230113
  Serious: Yes (Life-Threatening, Other)
  Sender: FDA-Public Use
  Company Number: JP-GSKNCCC-Case-01578816_AE-62609

PATIENT

DRUGS (15)
  1. VALTREX [Suspect]
     Active Substance: VALACYCLOVIR HYDROCHLORIDE
     Indication: Herpes zoster
     Dosage: 500 MG, QD, TAKEN DAILY INSTEAD OF BEING TAKEN AFTER DIALYSIS, A 7-DAY SUPPLY WERE ACTUALLY GIVEN
     Route: 048
     Dates: start: 20220921, end: 20220925
  2. LYRICA [Suspect]
     Active Substance: PREGABALIN
     Indication: Pain
     Dosage: 25 MG, AFTER DINNER
     Route: 048
     Dates: start: 20220921, end: 20220923
  3. XYZAL [Concomitant]
     Active Substance: LEVOCETIRIZINE DIHYDROCHLORIDE
     Indication: Rhinitis allergic
     Dosage: 5 MG
     Route: 048
     Dates: start: 2013
  4. FLUTICASONE FUROATE\VILANTEROL TRIFENATATE [Concomitant]
     Active Substance: FLUTICASONE FUROATE\VILANTEROL TRIFENATATE
     Indication: Asthma
     Dosage: 200 UG
     Route: 055
     Dates: start: 2013
  5. LEVOTHYROXINE SODIUM [Concomitant]
     Active Substance: LEVOTHYROXINE SODIUM
     Indication: Hypothyroidism
     Dosage: 25 UG (0.5 TABLET OF 50 UG)
     Route: 048
     Dates: start: 2013
  6. NIFEDIPINE CR TABLETS [Concomitant]
     Indication: Hypertension
     Dosage: 20 MG
     Route: 048
     Dates: start: 2013
  7. NIFEDIPINE CR TABLETS [Concomitant]
     Dosage: 40 MG
     Route: 048
  8. REMITCH OD [Concomitant]
     Indication: Pruritus
     Dosage: 5 UG
     Route: 048
     Dates: start: 2013
  9. NEXIUM [Concomitant]
     Active Substance: ESOMEPRAZOLE MAGNESIUM
     Indication: Chronic gastritis
     Dosage: 20 MG
     Route: 048
     Dates: start: 2013
  10. MONTELUKAST SODIUM [Concomitant]
     Active Substance: MONTELUKAST SODIUM
     Indication: Asthma
     Dosage: 10 MG
     Route: 048
     Dates: start: 2013
  11. TELMISARTAN [Concomitant]
     Active Substance: TELMISARTAN
     Indication: Hypertension
     Dosage: 40 MG
     Route: 048
     Dates: start: 2013
  12. MOSAPRIDE CITRATE [Concomitant]
     Active Substance: MOSAPRIDE CITRATE
     Indication: Chronic gastritis
     Dosage: 10 MG
     Route: 048
     Dates: start: 2013
  13. SARPOGRELATE HYDROCHLORIDE TABLETS [Concomitant]
     Indication: Cardiac failure chronic
     Dosage: 200 MG
     Route: 048
     Dates: start: 2013
  14. PRECIPITATED CALCIUM CARBONATE TABLETS [Concomitant]
     Indication: Chronic kidney disease
     Dosage: 3000 MG
     Route: 048
     Dates: start: 2013
  15. MIYA-BM [Concomitant]
     Active Substance: CLOSTRIDIUM BUTYRICUM SPORES STRAIN M-55
     Indication: Constipation
     Dosage: 3 DF
     Route: 048
     Dates: start: 2013

REACTIONS (9)
  - Hallucination [Recovered/Resolved]
  - Balance disorder [Recovering/Resolving]
  - Toxic encephalopathy [Recovered/Resolved]
  - Depressed level of consciousness [Unknown]
  - Mental disorder [Unknown]
  - Memory impairment [Recovered/Resolved]
  - Dizziness [Recovered/Resolved]
  - Somnolence [Recovered/Resolved]
  - Overdose [Unknown]

NARRATIVE: CASE EVENT DATE: 20220921
